FAERS Safety Report 7982193-2 (Version None)
Quarter: 2011Q4

REPORT INFORMATION
  Report Type: 
  Country: None (occurrence: None)
  Receive Date: 20111215
  Receipt Date: 20111205
  Transmission Date: 20120403
  Serious: Yes (Other)
  Sender: FDA-Public Use
  Company Number: PHHY2011DE91259

PATIENT
  Sex: Female

DRUGS (2)
  1. VOLTAREN [Suspect]
     Dosage: 1 DRP, BID
     Route: 047
     Dates: start: 20111016
  2. VOLTAREN [Suspect]
     Indication: CYSTOID MACULAR OEDEMA
     Dosage: 1 DRP, BID
     Route: 047
     Dates: start: 20030101, end: 20111014

REACTIONS (4)
  - RETINAL DEGENERATION [None]
  - VISUAL ACUITY REDUCED [None]
  - FALL [None]
  - BALANCE DISORDER [None]
